FAERS Safety Report 9399837 (Version 11)
Quarter: 2015Q2

REPORT INFORMATION
  Report Type: Report from Study
  Country: JP (occurrence: JP)
  Receive Date: 20130715
  Receipt Date: 20150605
  Transmission Date: 20150821
  Serious: Yes (Hospitalization, Other)
  Sender: FDA-Public Use
  Company Number: PHHY2013JP074070

PATIENT
  Age: 40 Year
  Sex: Female

DRUGS (45)
  1. CLOZARIL [Suspect]
     Active Substance: CLOZAPINE
     Dosage: 50 MG, QD
     Route: 048
     Dates: start: 20130624, end: 20130625
  2. CLOZARIL [Suspect]
     Active Substance: CLOZAPINE
     Dosage: 75 MG, QD
     Route: 048
     Dates: start: 20130626, end: 20130628
  3. CLOZARIL [Suspect]
     Active Substance: CLOZAPINE
     Dosage: 12.5 MG, QD
     Route: 048
     Dates: start: 20130927, end: 20130929
  4. CLOZARIL [Suspect]
     Active Substance: CLOZAPINE
     Dosage: 75 MG, QD
     Route: 048
     Dates: start: 20131011, end: 20131017
  5. CLOZARIL [Suspect]
     Active Substance: CLOZAPINE
     Dosage: 100 MG, QD
     Route: 048
     Dates: start: 20131018, end: 20131024
  6. CLOZARIL [Suspect]
     Active Substance: CLOZAPINE
     Dosage: 125 MG, QD
     Route: 048
     Dates: start: 20131025, end: 20131031
  7. CLOZARIL [Suspect]
     Active Substance: CLOZAPINE
     Dosage: 175 MG, QD
     Route: 048
     Dates: start: 20131108, end: 20131114
  8. DORAL [Concomitant]
     Active Substance: QUAZEPAM
     Indication: SCHIZOPHRENIA, DISORGANISED TYPE
     Dosage: 20 MG
     Route: 048
     Dates: start: 20120419, end: 20130627
  9. ROHYPNOL [Concomitant]
     Active Substance: FLUNITRAZEPAM
     Indication: SCHIZOPHRENIA, DISORGANISED TYPE
     Dosage: 2 MG
     Route: 048
     Dates: start: 20130628, end: 20130707
  10. ROHYPNOL [Concomitant]
     Active Substance: FLUNITRAZEPAM
     Dosage: 2 MG
     Route: 048
     Dates: start: 20130810, end: 20131212
  11. INVEGA [Concomitant]
     Active Substance: PALIPERIDONE
     Dosage: 12 MG
     Route: 048
     Dates: start: 20130901, end: 20131005
  12. INVEGA [Concomitant]
     Active Substance: PALIPERIDONE
     Dosage: 9 MG
     Route: 048
     Dates: start: 20131006, end: 20131011
  13. CLOZARIL [Suspect]
     Active Substance: CLOZAPINE
     Dosage: 125 MG, QD
     Route: 048
     Dates: start: 20130701, end: 20130702
  14. CLOZARIL [Suspect]
     Active Substance: CLOZAPINE
     Dosage: 150 MG, QD
     Route: 048
     Dates: start: 20131101, end: 20131107
  15. DEPAKENE [Concomitant]
     Active Substance: VALPROIC ACID
     Dosage: 400 MG
     Route: 048
     Dates: start: 20130906, end: 20130924
  16. LANDSEN [Concomitant]
     Active Substance: CLONAZEPAM
     Indication: SCHIZOPHRENIA, DISORGANISED TYPE
     Dosage: 6 MG
     Route: 048
     Dates: start: 20111016, end: 20130707
  17. INVEGA [Concomitant]
     Active Substance: PALIPERIDONE
     Dosage: 6 MG
     Route: 048
     Dates: start: 20130809, end: 20130820
  18. INVEGA [Concomitant]
     Active Substance: PALIPERIDONE
     Dosage: 3 MG
     Route: 048
     Dates: start: 20131020, end: 20131026
  19. CLOZARIL [Suspect]
     Active Substance: CLOZAPINE
     Dosage: 25 MG, QD
     Route: 048
     Dates: start: 20130930, end: 20131003
  20. CLOZARIL [Suspect]
     Active Substance: CLOZAPINE
     Dosage: 50 MG, QD
     Route: 048
     Dates: start: 20131004, end: 20131010
  21. CLOZARIL [Suspect]
     Active Substance: CLOZAPINE
     Dosage: 200 MG, QD
     Route: 048
     Dates: start: 20131115, end: 20140115
  22. MAGLAX [Concomitant]
     Active Substance: MAGNESIUM OXIDE
     Indication: PRODUCT USED FOR UNKNOWN INDICATION
     Dosage: 1980 MG
     Route: 048
     Dates: end: 20130707
  23. CLOZARIL [Suspect]
     Active Substance: CLOZAPINE
     Indication: SCHIZOPHRENIA, DISORGANISED TYPE
     Dosage: 12.5 MG, QD
     Route: 048
     Dates: start: 20130621, end: 20130621
  24. CLOZARIL [Suspect]
     Active Substance: CLOZAPINE
     Dosage: 100 MG, QD
     Route: 048
     Dates: start: 20130629, end: 20130630
  25. LANDSEN [Concomitant]
     Active Substance: CLONAZEPAM
     Dosage: 6 MG
     Route: 048
     Dates: start: 20130810
  26. SETOUS [Concomitant]
     Indication: SCHIZOPHRENIA, DISORGANISED TYPE
     Dosage: 75 MG
     Route: 048
     Dates: start: 20120731, end: 20130702
  27. SETOUS [Concomitant]
     Dosage: 50 MG
     Route: 048
     Dates: start: 20130703, end: 20130703
  28. MAGLAX [Concomitant]
     Active Substance: MAGNESIUM OXIDE
     Dosage: 990 MG
     Route: 048
     Dates: start: 20130824, end: 20131203
  29. LIMAS [Concomitant]
     Active Substance: LITHIUM CARBONATE
     Dosage: 600 MG
     Route: 048
     Dates: start: 20130810
  30. CLOZARIL [Suspect]
     Active Substance: CLOZAPINE
     Dosage: 175 MG, QD
     Route: 048
     Dates: start: 20130707, end: 20130709
  31. SETOUS [Concomitant]
     Dosage: 25 MG
     Route: 048
     Dates: start: 20130704, end: 20130705
  32. ZYPREXA [Concomitant]
     Active Substance: OLANZAPINE
     Dosage: 5 MG
     Route: 048
     Dates: start: 20130704, end: 20130705
  33. DEPAKENE [Concomitant]
     Active Substance: VALPROIC ACID
     Indication: SCHIZOPHRENIA, DISORGANISED TYPE
     Dosage: 800 MG
     Route: 048
     Dates: start: 20120703, end: 20130707
  34. DEPAKENE [Concomitant]
     Active Substance: VALPROIC ACID
     Dosage: 600 MG
     Route: 048
     Dates: start: 20130925, end: 20131111
  35. MAGLAX [Concomitant]
     Active Substance: MAGNESIUM OXIDE
     Dosage: 1980 MG
     Route: 048
     Dates: start: 20131204
  36. LIMAS [Concomitant]
     Active Substance: LITHIUM CARBONATE
     Indication: SCHIZOPHRENIA, DISORGANISED TYPE
     Dosage: 600 MG
     Route: 048
     Dates: start: 20111122, end: 20130707
  37. CLOZARIL [Suspect]
     Active Substance: CLOZAPINE
     Dosage: 25 MG, QD
     Route: 048
     Dates: start: 20130622, end: 20130623
  38. DEPAKENE [Concomitant]
     Active Substance: VALPROIC ACID
     Dosage: 800 MG
     Route: 048
     Dates: start: 20131112
  39. INVEGA [Concomitant]
     Active Substance: PALIPERIDONE
     Dosage: 9 MG
     Route: 048
     Dates: start: 20130821, end: 20130831
  40. CLOZARIL [Suspect]
     Active Substance: CLOZAPINE
     Dosage: 150 MG, QD
     Route: 048
     Dates: start: 20130703, end: 20130706
  41. ZYPREXA [Concomitant]
     Active Substance: OLANZAPINE
     Indication: SCHIZOPHRENIA, DISORGANISED TYPE
     Dosage: 20 M
     Route: 048
     Dates: start: 20111020, end: 20130626
  42. ZYPREXA [Concomitant]
     Active Substance: OLANZAPINE
     Dosage: 15 MG
     Route: 048
     Dates: start: 20130627, end: 20130703
  43. YODEL [Concomitant]
     Active Substance: SENNA LEAF
     Indication: PRODUCT USED FOR UNKNOWN INDICATION
     Dosage: 160 MG
     Route: 048
  44. INVEGA [Concomitant]
     Active Substance: PALIPERIDONE
     Indication: SCHIZOPHRENIA, DISORGANISED TYPE
     Dosage: 3 MG
     Route: 048
     Dates: start: 20130723, end: 20130808
  45. INVEGA [Concomitant]
     Active Substance: PALIPERIDONE
     Dosage: 6 MG
     Route: 048
     Dates: start: 20131012, end: 20131019

REACTIONS (15)
  - Altered state of consciousness [Unknown]
  - Hypercreatinaemia [Not Recovered/Not Resolved]
  - Pyrexia [Not Recovered/Not Resolved]
  - Neutrophil percentage increased [Recovered/Resolved]
  - Drug ineffective [Unknown]
  - Neutrophil count increased [Unknown]
  - White blood cell count increased [Recovered/Resolved]
  - Blood creatine phosphokinase increased [Not Recovered/Not Resolved]
  - Blood pressure decreased [Unknown]
  - Neutrophil percentage increased [Unknown]
  - Red blood cell count increased [Not Recovered/Not Resolved]
  - Neutrophil percentage increased [Recovered/Resolved]
  - Haemoglobin decreased [Not Recovered/Not Resolved]
  - White blood cell count increased [Recovered/Resolved]
  - Neutrophil percentage increased [Recovered/Resolved]

NARRATIVE: CASE EVENT DATE: 20130627
